APPROVED DRUG PRODUCT: HYDROCHLOROTHIAZIDE
Active Ingredient: HYDROCHLOROTHIAZIDE
Strength: 25MG
Dosage Form/Route: TABLET;ORAL
Application: A084878 | Product #002
Applicant: HIKMA INTERNATIONAL PHARMACEUTICALS LLC
Approved: Jul 12, 2006 | RLD: No | RS: No | Type: DISCN